FAERS Safety Report 9550116 (Version 1)
Quarter: 2013Q3

REPORT INFORMATION
  Report Type: Report from Study
  Country: CO (occurrence: CO)
  Receive Date: 20130924
  Receipt Date: 20130924
  Transmission Date: 20140515
  Serious: Yes (Other)
  Sender: FDA-Public Use
  Company Number: CO-B.I. PHARMACEUTICALS,INC./RIDGEFIELD-2013-BI-29160GD

PATIENT
  Sex: 0

DRUGS (1)
  1. TELMISARTAN [Suspect]
     Indication: HYPERTENSION

REACTIONS (2)
  - Renal failure acute [Unknown]
  - Glomerular filtration rate decreased [Unknown]
